FAERS Safety Report 17791247 (Version 1)
Quarter: 2020Q2

REPORT INFORMATION
  Report Type: Spontaneous
  Country: US (occurrence: US)
  Receive Date: 20200514
  Receipt Date: 20200514
  Transmission Date: 20200714
  Serious: Yes (Hospitalization)
  Sender: FDA-Public Use
  Company Number: None

PATIENT
  Age: 76 Year
  Sex: Male

DRUGS (1)
  1. PHENYTOIN (PHENYTOIN NA 100MG CAP) [Suspect]
     Active Substance: PHENYTOIN SODIUM
     Indication: SEIZURE
     Route: 048
     Dates: start: 20200201, end: 20200419

REACTIONS (5)
  - Treatment noncompliance [None]
  - Intentional product use issue [None]
  - Toxicity to various agents [None]
  - Brain scan abnormal [None]
  - Seizure [None]

NARRATIVE: CASE EVENT DATE: 20200419
